FAERS Safety Report 6529553-4 (Version None)
Quarter: 2010Q1

REPORT INFORMATION
  Report Type: 
  Country: None (occurrence: None)
  Receive Date: 20100107
  Receipt Date: 20091230
  Transmission Date: 20100710
  Serious: No
  Sender: FDA-Public Use
  Company Number: US-JNJFOC-20100100170

PATIENT
  Sex: Male
  Weight: 108.86 kg

DRUGS (6)
  1. DURAGESIC-100 [Suspect]
     Indication: NEURALGIA
     Route: 062
  2. DURAGESIC-100 [Suspect]
     Dosage: NDC#: 50458-0092-05
     Route: 062
  3. ELAVIL [Concomitant]
     Indication: MYALGIA
     Route: 048
  4. ELAVIL [Concomitant]
     Indication: NEURALGIA
     Route: 048
  5. NEURONTIN [Concomitant]
     Indication: NEURALGIA
     Route: 048
  6. VIOXX [Concomitant]
     Indication: PAIN
     Route: 048

REACTIONS (4)
  - DRUG PRESCRIBING ERROR [None]
  - INADEQUATE ANALGESIA [None]
  - INAPPROPRIATE SCHEDULE OF DRUG ADMINISTRATION [None]
  - OEDEMA PERIPHERAL [None]
